FAERS Safety Report 12285502 (Version 1)
Quarter: 2016Q2

REPORT INFORMATION
  Report Type: Spontaneous
  Country: US (occurrence: US)
  Receive Date: 20160420
  Receipt Date: 20160420
  Transmission Date: 20160815
  Serious: Yes (Other)
  Sender: FDA-Public Use
  Company Number: US-AUROBINDO-AUR-APL-2014-02431

PATIENT

DRUGS (2)
  1. RISPERIDONE TABLETS 0.25 MG [Suspect]
     Active Substance: RISPERIDONE
     Indication: MENTAL DISORDER
     Dosage: UNK UNK,UNK,
     Route: 065
  2. RISPERIDONE. [Suspect]
     Active Substance: RISPERIDONE
     Indication: MENTAL DISORDER
     Dosage: 3 DF,UNK,
     Route: 065

REACTIONS (2)
  - Breast swelling [Recovered/Resolved]
  - Hepatic cancer stage IV [Unknown]
